FAERS Safety Report 6979156-2 (Version None)
Quarter: 2010Q3

REPORT INFORMATION
  Report Type: 
  Country: None (occurrence: None)
  Receive Date: 20100913
  Receipt Date: 20100910
  Transmission Date: 20110219
  Serious: Yes (Life-Threatening, Hospitalization, Other)
  Sender: FDA-Public Use
  Company Number: PHFR2010GB02566

PATIENT
  Sex: Male
  Weight: 85 kg

DRUGS (10)
  1. CLOZARIL [Suspect]
     Indication: SCHIZOPHRENIA
     Dosage: 400 MG, UNK
     Route: 048
     Dates: start: 20070821
  2. LITHIUM CARBONATE [Concomitant]
     Indication: DEPRESSION
     Dosage: 500 MG, UNK
     Route: 048
     Dates: start: 20100101
  3. VENLAFAXINE [Concomitant]
     Dosage: 300 MG, UNK
     Route: 048
  4. ISOSORBIDE MONONITRATE [Concomitant]
     Dosage: 80 MG, UNK
  5. PROPRANOLOL [Concomitant]
     Dosage: 80 MG, UNK
  6. OMEPRAZOLE [Concomitant]
     Dosage: 40 MG, UNK
  7. ALBUTEROL SULFATE AUTOHALER [Concomitant]
     Dosage: 2 PUFFS QDS
  8. SERETIDE ^ALLEN + HANBURYS LTD^ [Concomitant]
     Dosage: 2 PUFFS BID
  9. GAVISCON [Concomitant]
     Dosage: UNK
  10. ACETAMINOPHEN [Concomitant]
     Dosage: UNK

REACTIONS (6)
  - MONOCYTE COUNT INCREASED [None]
  - NEUTROPHIL COUNT INCREASED [None]
  - PNEUMONIA [None]
  - PYOTHORAX [None]
  - PYREXIA [None]
  - WHITE BLOOD CELL COUNT INCREASED [None]
